FAERS Safety Report 8967196 (Version 1)
Quarter: 2012Q4

REPORT INFORMATION
  Report Type: Report from Study
  Country: CA (occurrence: CA)
  Receive Date: 20121217
  Receipt Date: 20121217
  Transmission Date: 20130627
  Serious: Yes (Other)
  Sender: FDA-Public Use
  Company Number: CA-JNJFOC-20121110660

PATIENT
  Sex: Female
  Weight: 108.6 kg

DRUGS (13)
  1. REMICADE [Suspect]
     Indication: CROHN^S DISEASE
     Route: 042
     Dates: start: 20070629
  2. REMICADE [Suspect]
     Indication: CROHN^S DISEASE
     Dosage: 44th infusion
     Route: 042
     Dates: start: 20121119
  3. REMICADE [Suspect]
     Indication: CROHN^S DISEASE
     Route: 042
     Dates: start: 20121003
  4. EFFEXOR [Concomitant]
     Route: 065
  5. TYLENOL 3 [Concomitant]
     Route: 065
  6. UNSPECIFIED BIRTH CONTROL [Concomitant]
     Route: 065
  7. FLOVENT [Concomitant]
     Route: 065
  8. MULTIVITAMINS [Concomitant]
     Route: 065
  9. LORAZEPAM [Concomitant]
     Route: 065
  10. SALBUTAMOL [Concomitant]
     Route: 065
  11. GRAVOL [Concomitant]
     Route: 065
  12. PARIET [Concomitant]
     Route: 065
  13. CANNABIS [Concomitant]
     Route: 065

REACTIONS (3)
  - Haematemesis [Not Recovered/Not Resolved]
  - Sinusitis [Not Recovered/Not Resolved]
  - Endodontic procedure [Recovered/Resolved]
